FAERS Safety Report 20051740 (Version 1)
Quarter: 2021Q4

REPORT INFORMATION
  Report Type: Report from Study
  Country: GB (occurrence: GB)
  Receive Date: 20211110
  Receipt Date: 20211110
  Transmission Date: 20220303
  Serious: Yes (Hospitalization)
  Sender: FDA-Public Use
  Company Number: GB-IPSEN Group, Research and Development-2021-10203

PATIENT
  Sex: Female

DRUGS (1)
  1. LANREOTIDE ACETATE [Suspect]
     Active Substance: LANREOTIDE ACETATE
     Indication: Neuroendocrine tumour
     Dosage: 120 MG/0.5 ML
     Route: 058

REACTIONS (7)
  - Infection [Unknown]
  - General physical health deterioration [Recovered/Resolved]
  - General physical health deterioration [Unknown]
  - Pain [Unknown]
  - Fatigue [Not Recovered/Not Resolved]
  - Musculoskeletal pain [Unknown]
  - Spinal pain [Unknown]
